FAERS Safety Report 6699872-X (Version None)
Quarter: 2010Q2

REPORT INFORMATION
  Report Type: 
  Country: None (occurrence: None)
  Receive Date: 20100427
  Receipt Date: 20100427
  Transmission Date: 20101027
  Serious: Yes (Other)
  Sender: FDA-Public Use
  Company Number: None

PATIENT
  Age: 27 Year
  Sex: Male
  Weight: 72.5755 kg

DRUGS (1)
  1. XYZAL [Suspect]
     Indication: HYPERSENSITIVITY
     Dosage: 1 PILL DAILY PO
     Route: 048
     Dates: start: 20100405, end: 20100406

REACTIONS (7)
  - CHILLS [None]
  - COLD SWEAT [None]
  - DIZZINESS [None]
  - FATIGUE [None]
  - HEADACHE [None]
  - PAIN [None]
  - PYREXIA [None]
